FAERS Safety Report 11116242 (Version 1)
Quarter: 2015Q2

REPORT INFORMATION
  Report Type: Spontaneous
  Country: US (occurrence: None)
  Receive Date: 20150514
  Receipt Date: 20150514
  Transmission Date: 20150821
  Serious: Yes (Disabling, Other)
  Sender: FDA-Public Use
  Company Number: None

PATIENT
  Age: 65 Year
  Sex: Male
  Weight: 81.65 kg

DRUGS (24)
  1. OMEPRAZOLE DR [Concomitant]
     Active Substance: OMEPRAZOLE
  2. NATTOZIMES [Concomitant]
  3. VITAMIN C [Concomitant]
     Active Substance: ASCORBIC ACID
  4. ONE A DAY VITAMIN WITH IRON [Concomitant]
  5. CALCIUM [Concomitant]
     Active Substance: CALCIUM
  6. SIMVASTATIN. [Suspect]
     Active Substance: SIMVASTATIN
     Indication: PROPHYLAXIS
     Dosage: 5 MG TABLET 1 PILL 1 PILL PER DAY BY MOUTH
     Route: 048
     Dates: start: 20080201, end: 20100406
  7. NIACIN. [Concomitant]
     Active Substance: NIACIN
  8. AMLODIPINE [Concomitant]
     Active Substance: AMLODIPINE BESYLATE
  9. LISINOPRIL. [Concomitant]
     Active Substance: LISINOPRIL
  10. ALOE VERA [Concomitant]
     Active Substance: ALOE VERA LEAF
  11. BUTCHERS BROOM [Concomitant]
  12. SIMVASTATIN. [Suspect]
     Active Substance: SIMVASTATIN
     Indication: ARTERIOSCLEROSIS
     Dosage: 5 MG TABLET 1 PILL 1 PILL PER DAY BY MOUTH
     Route: 048
     Dates: start: 20080201, end: 20100406
  13. VITAMIN K-2 [Concomitant]
  14. COQ10 [Concomitant]
     Active Substance: UBIDECARENONE
  15. ARGININE [Concomitant]
     Active Substance: ARGININE
  16. HORSE CHESTNUT [Concomitant]
     Active Substance: HORSE CHESTNUT
  17. SIMVASTATIN. [Suspect]
     Active Substance: SIMVASTATIN
     Indication: CARDIAC DISORDER
     Dosage: 5 MG TABLET 1 PILL 1 PILL PER DAY BY MOUTH
     Route: 048
     Dates: start: 20080201, end: 20100406
  18. METOPROLOL [Concomitant]
     Active Substance: METOPROLOL
  19. ASPIRIN. [Concomitant]
     Active Substance: ASPIRIN
  20. VITAMIN E [Concomitant]
     Active Substance: .ALPHA.-TOCOPHEROL
  21. TRIAMTERENE HCTZ [Concomitant]
     Active Substance: HYDROCHLOROTHIAZIDE\TRIAMTERENE
  22. NITROSTAT [Concomitant]
     Active Substance: NITROGLYCERIN
  23. POTASSIUM [Concomitant]
     Active Substance: POTASSIUM
  24. VEGTABLES + FRUIT [Concomitant]

REACTIONS (6)
  - Myalgia [None]
  - Gait disturbance [None]
  - Muscle disorder [None]
  - Coronary artery occlusion [None]
  - Pain in extremity [None]
  - Carotid artery disease [None]

NARRATIVE: CASE EVENT DATE: 20080201
